FAERS Safety Report 5757699-7 (Version None)
Quarter: 2008Q2

REPORT INFORMATION
  Report Type: 
  Country: None (occurrence: None)
  Receive Date: 20080529
  Receipt Date: 20080521
  Transmission Date: 20081010
  Serious: Yes (Other)
  Sender: FDA-Public Use
  Company Number: 2008013445

PATIENT
  Sex: Female

DRUGS (3)
  1. CETIRIZINE HCL [Suspect]
     Dosage: 10 MG DAILY, ORAL
     Route: 048
  2. MARVELON (DESOGESTREL, ETHINYLESTRADIOL) [Concomitant]
  3. FLONASE [Concomitant]

REACTIONS (5)
  - ANXIETY [None]
  - HOT FLUSH [None]
  - INSOMNIA [None]
  - PANIC REACTION [None]
  - PARANOIA [None]
